FAERS Safety Report 8990350 (Version 1)
Quarter: 2012Q4

REPORT INFORMATION
  Report Type: 
  Country: TN (occurrence: TN)
  Receive Date: 20121228
  Receipt Date: 20121228
  Transmission Date: 20130627
  Serious: Yes (Death)
  Sender: FDA-Public Use
  Company Number: TN-SANOFI-AVENTIS-2012SA094730

PATIENT
  Age: 61 Year
  Sex: Female

DRUGS (9)
  1. PLAVIX [Suspect]
     Indication: MYOCARDIAL INFARCTION
     Route: 048
     Dates: start: 20111224, end: 20121028
  2. PLAVIX [Suspect]
     Indication: STENT INSERTION NOS
     Route: 048
     Dates: start: 20111224, end: 20121028
  3. DILACOR [Concomitant]
     Route: 048
     Dates: end: 20121028
  4. TENSOPRIL [Concomitant]
     Route: 048
     Dates: end: 20121028
  5. ATORVASTATIN [Concomitant]
     Route: 048
     Dates: end: 20121028
  6. TILDIEM [Concomitant]
     Route: 048
     Dates: end: 20121028
  7. ACTRAPID HUMAN [Concomitant]
     Route: 058
     Dates: end: 20121028
  8. INSULIN [Concomitant]
     Route: 058
     Dates: end: 20121028
  9. ASPIRINE [Concomitant]
     Route: 048
     Dates: end: 20121028

REACTIONS (2)
  - Cardiac arrest [Fatal]
  - Dyspnoea [Fatal]
